FAERS Safety Report 13552043 (Version 1)
Quarter: 2017Q2

REPORT INFORMATION
  Report Type: Spontaneous
  Country: US (occurrence: US)
  Receive Date: 20170516
  Receipt Date: 20170516
  Transmission Date: 20170830
  Serious: No
  Sender: FDA-Public Use
  Company Number: US-ELI_LILLY_AND_COMPANY-US201705003857

PATIENT
  Age: 65 Year
  Sex: Female

DRUGS (5)
  1. LISINOPRIL. [Concomitant]
     Active Substance: LISINOPRIL
     Indication: CARDIAC DISORDER
  2. PRAVASTATIN. [Concomitant]
     Active Substance: PRAVASTATIN
     Indication: CARDIAC DISORDER
  3. ASPIRIN                            /00002701/ [Concomitant]
     Active Substance: ASPIRIN
     Indication: CARDIAC DISORDER
  4. TRULICITY [Suspect]
     Active Substance: DULAGLUTIDE
     Indication: TYPE 2 DIABETES MELLITUS
     Dosage: 1.5 MG, WEEKLY (1/W)
     Route: 065
     Dates: start: 20170303
  5. CARVIDOL [Concomitant]
     Indication: CARDIAC DISORDER

REACTIONS (8)
  - Paraesthesia [Unknown]
  - Pain in extremity [Unknown]
  - Limb discomfort [Unknown]
  - Malaise [Unknown]
  - Nausea [Recovering/Resolving]
  - Constipation [Recovering/Resolving]
  - Drug dose omission [Unknown]
  - Arthralgia [Unknown]

NARRATIVE: CASE EVENT DATE: 20170303
